FAERS Safety Report 17769390 (Version 1)
Quarter: 2020Q2

REPORT INFORMATION
  Report Type: Spontaneous
  Country: US (occurrence: US)
  Receive Date: 20200512
  Receipt Date: 20200512
  Transmission Date: 20200714
  Serious: Yes (Hospitalization, Other)
  Sender: FDA-Public Use
  Company Number: US-VISTAPHARM, INC.-VER202005-000882

PATIENT
  Age: 21 Year
  Sex: Male

DRUGS (2)
  1. HYDROCODONE AND ACETAMINOPHEN [Suspect]
     Active Substance: ACETAMINOPHEN\HYDROCODONE
     Dosage: UNKNOWN
     Route: 065
  2. MYCOPHENOLATE MOFETIL, USP [Suspect]
     Active Substance: MYCOPHENOLATE MOFETIL

REACTIONS (8)
  - Dysarthria [Unknown]
  - Facial paresis [Unknown]
  - Pyrexia [Unknown]
  - Infection [Unknown]
  - Brain oedema [Unknown]
  - Coagulopathy [Unknown]
  - Toxoplasmosis [Unknown]
  - Hepatic failure [Unknown]
